FAERS Safety Report 23648031 (Version 1)
Quarter: 2024Q1

REPORT INFORMATION
  Report Type: Spontaneous
  Country: US (occurrence: US)
  Receive Date: 20240319
  Receipt Date: 20240319
  Transmission Date: 20240409
  Serious: No
  Sender: FDA-Public Use
  Company Number: US-Ascend Therapeutics US, LLC-2154528

PATIENT
  Sex: Male

DRUGS (2)
  1. ANDROGEL [Suspect]
     Active Substance: TESTOSTERONE
     Route: 065
  2. ANDROGEL [Suspect]
     Active Substance: TESTOSTERONE
     Route: 065

REACTIONS (3)
  - Chest pain [Unknown]
  - Unevaluable event [Unknown]
  - Pain in extremity [Unknown]
